FAERS Safety Report 11120538 (Version 2)
Quarter: 2015Q2

REPORT INFORMATION
  Report Type: Spontaneous
  Country: DE (occurrence: DE)
  Receive Date: 20150519
  Receipt Date: 20150602
  Transmission Date: 20150821
  Serious: Yes (Other)
  Sender: FDA-Public Use
  Company Number: DE-ROCHE-1578580

PATIENT
  Age: 57 Year
  Sex: Male
  Weight: 78 kg

DRUGS (7)
  1. FOLINIC ACID [Concomitant]
     Active Substance: LEUCOVORIN
     Indication: COLORECTAL CANCER METASTATIC
     Route: 042
  2. IRINOTECAN [Concomitant]
     Active Substance: IRINOTECAN
     Indication: COLORECTAL CANCER METASTATIC
     Dosage: INTERMITTENTLY
     Route: 042
     Dates: start: 201109, end: 201401
  3. AVASTIN [Suspect]
     Active Substance: BEVACIZUMAB
     Indication: COLORECTAL CANCER METASTATIC
     Route: 042
     Dates: start: 201109, end: 201411
  4. 5-FU [Concomitant]
     Active Substance: FLUOROURACIL
     Indication: COLORECTAL CANCER METASTATIC
     Route: 040
     Dates: start: 201109
  5. AVASTIN [Suspect]
     Active Substance: BEVACIZUMAB
     Route: 042
     Dates: start: 20150216, end: 20150427
  6. 5-FU [Concomitant]
     Active Substance: FLUOROURACIL
     Dosage: 46 H EASY PUMP
     Route: 041
     Dates: start: 201109
  7. IRINOTECAN [Concomitant]
     Active Substance: IRINOTECAN
     Route: 042
     Dates: start: 20150216

REACTIONS (1)
  - Splenic infarction [Unknown]

NARRATIVE: CASE EVENT DATE: 20150505
